FAERS Safety Report 17393125 (Version 1)
Quarter: 2020Q1

REPORT INFORMATION
  Report Type: Spontaneous
  Country: FI (occurrence: FI)
  Receive Date: 20200207
  Receipt Date: 20200207
  Transmission Date: 20200409
  Serious: Yes (Other)
  Sender: FDA-Public Use
  Company Number: FI-TAKEDA-2020TUS007399

PATIENT
  Age: 17 Year
  Sex: Female

DRUGS (1)
  1. BRINTELLIX [Suspect]
     Active Substance: VORTIOXETINE HYDROBROMIDE
     Indication: GENERALISED ANXIETY DISORDER
     Dosage: UNK
     Route: 048
     Dates: start: 20191002, end: 20191114

REACTIONS (3)
  - Intestinal haemorrhage [Recovering/Resolving]
  - Product use in unapproved indication [Recovering/Resolving]
  - Product administered to patient of inappropriate age [Recovering/Resolving]

NARRATIVE: CASE EVENT DATE: 20191015
